FAERS Safety Report 22336070 (Version 1)
Quarter: 2023Q2

REPORT INFORMATION
  Report Type: Spontaneous
  Country: US (occurrence: None)
  Receive Date: 20230518
  Receipt Date: 20230518
  Transmission Date: 20230721
  Serious: No
  Sender: FDA-Public Use
  Company Number: US-ROCHE-3145698

PATIENT
  Sex: Female

DRUGS (15)
  1. ACTEMRA [Suspect]
     Active Substance: TOCILIZUMAB
     Indication: Rheumatoid arthritis
     Dosage: STRENGTH: 162MG 0.9ML
     Route: 058
  2. ACTEMRA [Suspect]
     Active Substance: TOCILIZUMAB
  3. REVLIMID [Concomitant]
     Active Substance: LENALIDOMIDE
  4. AMBRISENTAN [Concomitant]
     Active Substance: AMBRISENTAN
  5. TADALAFIL [Concomitant]
     Active Substance: TADALAFIL
  6. ALLOPURINOL [Concomitant]
     Active Substance: ALLOPURINOL
  7. ASPIRIN [Concomitant]
     Active Substance: ASPIRIN
  8. AZATHIOPRINE [Concomitant]
     Active Substance: AZATHIOPRINE
  9. FUROSEMIDE [Concomitant]
     Active Substance: FUROSEMIDE
  10. GABAPENTIN [Concomitant]
     Active Substance: GABAPENTIN
  11. PANTOPRAZOLE SODIUM [Concomitant]
     Active Substance: PANTOPRAZOLE SODIUM
  12. PLAQUENIL [Concomitant]
     Active Substance: HYDROXYCHLOROQUINE SULFATE
  13. POTASSIUM CHLORIDE [Concomitant]
     Active Substance: POTASSIUM CHLORIDE
  14. PREDNISONE [Concomitant]
     Active Substance: PREDNISONE
  15. VITAMIN B12 [Concomitant]
     Active Substance: CYANOCOBALAMIN

REACTIONS (1)
  - Anaemia [Not Recovered/Not Resolved]
